FAERS Safety Report 18473340 (Version 9)
Quarter: 2022Q1

REPORT INFORMATION
  Report Type: Spontaneous
  Country: US (occurrence: US)
  Receive Date: 20201106
  Receipt Date: 20220214
  Transmission Date: 20220423
  Serious: Yes (Death, Other)
  Sender: FDA-Public Use
  Company Number: US-DECIPHERA PHARMACEUTICALS LLC-2020-US-000597

PATIENT
  Sex: Male

DRUGS (2)
  1. QINLOCK [Suspect]
     Active Substance: RIPRETINIB
     Indication: Gastrointestinal stromal tumour
     Dosage: UNK
     Route: 048
  2. QINLOCK [Suspect]
     Active Substance: RIPRETINIB
     Dosage: 150 MILLIGRAM, BID
     Route: 048

REACTIONS (11)
  - Neoplasm progression [Fatal]
  - Hepatic neoplasm [Not Recovered/Not Resolved]
  - Tumour compression [Unknown]
  - Tumour pain [Unknown]
  - Speech disorder [Not Recovered/Not Resolved]
  - Neck mass [Unknown]
  - Pain [Unknown]
  - Malaise [Unknown]
  - Constipation [Unknown]
  - Drug ineffective [Unknown]
  - Extra dose administered [Unknown]
